FAERS Safety Report 5058063-9 (Version None)
Quarter: 2006Q3

REPORT INFORMATION
  Report Type: 
  Country: None (occurrence: None)
  Receive Date: 20060721
  Receipt Date: 20060718
  Transmission Date: 20061208
  Serious: Yes (Hospitalization)
  Sender: FDA-Public Use
  Company Number: 2006CG01246

PATIENT
  Age: 71 Year
  Sex: Female

DRUGS (8)
  1. ATACAND [Suspect]
     Route: 048
  2. IPERTEN [Suspect]
     Route: 048
     Dates: end: 20051017
  3. LIPANTHYL [Concomitant]
     Route: 048
     Dates: end: 20051017
  4. PIASCLEDINE [Concomitant]
     Route: 048
  5. OGAST [Concomitant]
     Route: 048
  6. TEMESTA [Concomitant]
  7. CEMAFLAVONE [Concomitant]
  8. DAFALGAN [Concomitant]

REACTIONS (3)
  - HEADACHE [None]
  - MALAISE [None]
  - ORTHOSTATIC HYPOTENSION [None]
